FAERS Safety Report 13178385 (Version 1)
Quarter: 2017Q1

REPORT INFORMATION
  Report Type: Spontaneous
  Country: US (occurrence: US)
  Receive Date: 20170201
  Receipt Date: 20170201
  Transmission Date: 20170428
  Serious: No
  Sender: FDA-Public Use
  Company Number: None

PATIENT
  Age: 48 Year
  Sex: Male

DRUGS (1)
  1. METHYLPHENIDATE 10MG TAB CAMBER [Suspect]
     Active Substance: METHYLPHENIDATE HYDROCHLORIDE
     Dosage: 10MG 5 TIMES A DAY P.O.
     Route: 048
     Dates: start: 20170118

REACTIONS (5)
  - Product substitution issue [None]
  - Wrong technique in product usage process [None]
  - Tongue discolouration [None]
  - Product solubility abnormal [None]
  - Reaction to colouring [None]

NARRATIVE: CASE EVENT DATE: 20170131
